FAERS Safety Report 20844281 (Version 1)
Quarter: 2022Q2

REPORT INFORMATION
  Report Type: Spontaneous
  Country: CA (occurrence: CA)
  Receive Date: 20220518
  Receipt Date: 20220518
  Transmission Date: 20220721
  Serious: Yes (Hospitalization)
  Sender: FDA-Public Use
  Company Number: CA-PFIZER INC-202200687485

PATIENT
  Age: 39 Year
  Sex: Female

DRUGS (2)
  1. BICILLIN L-A [Suspect]
     Active Substance: PENICILLIN G BENZATHINE
     Indication: Syphilis
     Dosage: UNK
     Route: 030
  2. COMPLERA [Concomitant]
     Active Substance: EMTRICITABINE\RILPIVIRINE HYDROCHLORIDE\TENOFOVIR DISOPROXIL FUMARATE
     Dosage: UNK

REACTIONS (4)
  - C-reactive protein increased [Recovered/Resolved]
  - Inflammation [Recovered/Resolved]
  - Leukocytosis [Recovered/Resolved]
  - Pain in extremity [Recovered/Resolved]
